FAERS Safety Report 8784734 (Version 1)
Quarter: 2012Q4

REPORT INFORMATION
  Report Type: 
  Country: CH (occurrence: CH)
  Receive Date: 20120914
  Receipt Date: 20120914
  Transmission Date: 20130627
  Serious: Yes (Other)
  Sender: FDA-Public Use
  Company Number: CH-009507513-1209CHE004086

PATIENT

DRUGS (2)
  1. NASONEX [Suspect]
     Indication: RHINITIS
     Dosage: 50 Microgram two units per nostril, qam
     Route: 045
     Dates: start: 2005
  2. NASONEX [Suspect]
     Indication: CHRONIC SINUSITIS

REACTIONS (1)
  - Insomnia [Not Recovered/Not Resolved]
